FAERS Safety Report 8399666-3 (Version None)
Quarter: 2012Q2

REPORT INFORMATION
  Report Type: 
  Country: None (occurrence: None)
  Receive Date: 20120323
  Receipt Date: 20110812
  Transmission Date: 20120825
  Serious: Yes (Hospitalization)
  Sender: FDA-Public Use
  Company Number: 163-21880-11072321

PATIENT
  Age: 84 Year
  Sex: Male

DRUGS (8)
  1. LOPRESSOR [Concomitant]
  2. MELPHALAN HYDROCHLORIDE [Concomitant]
  3. REVLIMID [Suspect]
     Indication: MULTIPLE MYELOMA
     Dosage: 25 MG, QD X 21 DAYS, THEN 7 DAYS OFF, PO
     Route: 048
     Dates: start: 20110520
  4. PREDNISONE [Concomitant]
  5. NEULASTA ( PEGFILGRASTIM) (UNKNOWN) [Concomitant]
  6. RITUXAN (RITUXIMAB)(UNKNOWN) [Concomitant]
  7. NORVASC [Concomitant]
  8. SYMBICORT (SYMBICORT TURBUHALER ^DRACO^ ) (UNKNOWN) [Concomitant]

REACTIONS (2)
  - HAEMOGLOBIN DECREASED [None]
  - THROMBOCYTOPENIA [None]
